FAERS Safety Report 19977696 (Version 1)
Quarter: 2021Q4

REPORT INFORMATION
  Report Type: Spontaneous
  Country: CN (occurrence: CN)
  Receive Date: 20211020
  Receipt Date: 20211020
  Transmission Date: 20220303
  Serious: No
  Sender: FDA-Public Use
  Company Number: CN-ELI_LILLY_AND_COMPANY-CN202110004942

PATIENT
  Age: 36 Year
  Sex: Female
  Weight: 50 kg

DRUGS (6)
  1. ZYPREXA [Suspect]
     Active Substance: OLANZAPINE
     Indication: Mania
     Dosage: 5 MG, DAILY
     Route: 048
     Dates: start: 20210901, end: 20210902
  2. ZYPREXA [Suspect]
     Active Substance: OLANZAPINE
     Dosage: 5 MG, BID
     Route: 048
     Dates: start: 20210903, end: 20210907
  3. OLANZAPINE [Suspect]
     Active Substance: OLANZAPINE
     Indication: Mania
     Dosage: 5 MG, DAILY
     Route: 048
     Dates: start: 20210908, end: 20210915
  4. OLANZAPINE [Suspect]
     Active Substance: OLANZAPINE
     Dosage: 15 MG, DAILY
     Route: 048
     Dates: start: 20210916
  5. OLANZAPINE [Suspect]
     Active Substance: OLANZAPINE
     Dosage: 10 MG, DAILY
     Route: 048
  6. OLANZAPINE [Suspect]
     Active Substance: OLANZAPINE
     Dosage: 20 MG, DAILY
     Route: 048

REACTIONS (1)
  - White blood cell count decreased [Recovered/Resolved]

NARRATIVE: CASE EVENT DATE: 20210916
